FAERS Safety Report 24350217 (Version 1)
Quarter: 2024Q3

REPORT INFORMATION
  Report Type: Spontaneous
  Country: US (occurrence: None)
  Receive Date: 20240921
  Receipt Date: 20240921
  Transmission Date: 20241016
  Serious: Yes (Hospitalization)
  Sender: Public
  Company Number: None

PATIENT
  Sex: Female
  Weight: 79.5 kg

DRUGS (1)
  1. FEMARA [Suspect]
     Active Substance: LETROZOLE
     Dates: end: 20240917

REACTIONS (2)
  - Cardiac disorder [None]
  - Aortic aneurysm [None]

NARRATIVE: CASE EVENT DATE: 20240917
